FAERS Safety Report 6109270-5 (Version None)
Quarter: 2009Q1

REPORT INFORMATION
  Report Type: 
  Country: None (occurrence: None)
  Receive Date: 20090306
  Receipt Date: 20090225
  Transmission Date: 20090719
  Serious: Yes (Other)
  Sender: FDA-Public Use
  Company Number: B0562781A

PATIENT
  Age: 30 Year
  Sex: Male

DRUGS (4)
  1. EPIVIR [Suspect]
     Indication: HIV INFECTION
  2. STAVUDINE [Suspect]
     Indication: HIV INFECTION
  3. EFAVIRENZ [Suspect]
     Indication: HIV INFECTION
  4. GANCICLOVIR [Concomitant]

REACTIONS (3)
  - IMMUNE RECONSTITUTION SYNDROME [None]
  - VITRITIS [None]
  - WEIGHT INCREASED [None]
